FAERS Safety Report 9332923 (Version 1)
Quarter: 2013Q2

REPORT INFORMATION
  Report Type: Spontaneous
  Country: DE (occurrence: DE)
  Receive Date: 20130606
  Receipt Date: 20130606
  Transmission Date: 20140414
  Serious: Yes (Death, Other)
  Sender: FDA-Public Use
  Company Number: DE-UCBSA-087668

PATIENT
  Age: 40 Year
  Sex: Female
  Weight: 47 kg

DRUGS (18)
  1. VIMPAT [Suspect]
     Dosage: 100 MG-168 TABLETS, IN THE MORNING AND 1AND A HALF IN THE EVENING
  2. VIMPAT [Suspect]
     Dosage: 100 MG IN AM (1 TAB) AND 150 MG IN PM (1 1/2 TAB)
  3. KEPPRA [Suspect]
     Dosage: 1000 MG, 1 AND HALF IN THE MORNING AND EVENING
  4. KEPPRA [Suspect]
  5. DIAMOX [Suspect]
     Dosage: 100 TABLETS,
  6. DIAMOX [Suspect]
     Dosage: BID
  7. VALDOXAN [Suspect]
     Dosage: 98 TABLETS
  8. VALDOXAN [Suspect]
     Dosage: 2 IN EVENING
  9. LAMOTRIGINE [Suspect]
     Dosage: WEEK 1: 100 MG; 1 IN THE MORNING AND 1 AND HALF IN THE EVENING
  10. LAMOTRIGINE [Suspect]
     Dosage: WEEK 2: 100 MG-1 IN THE MORNING AND 2  IN THE EVENING
  11. LAMOTRIGINE [Suspect]
     Dosage: WEEK 3: 100 MG-1 AND HALF  IN THE MORNING AND 2 IN THE EVENING
  12. LAMOTRIGINE [Suspect]
     Dosage: WEEK 4: 100 MG-2 IN THE MORNING AND 2 IN THE EVENING
  13. LAMOTRIGINE [Suspect]
  14. CITALOPRAM [Suspect]
  15. CLOBAZAM [Suspect]
  16. LORAZEPAM [Suspect]
  17. LORAZEPAM [Suspect]
  18. CAPTAN [Suspect]

REACTIONS (3)
  - Completed suicide [Fatal]
  - Toxicity to various agents [Fatal]
  - Pulmonary oedema [None]
